FAERS Safety Report 8113275-2 (Version None)
Quarter: 2012Q1

REPORT INFORMATION
  Report Type: 
  Country: None (occurrence: None)
  Receive Date: 20120203
  Receipt Date: 20120131
  Transmission Date: 20120608
  Serious: Yes (Other)
  Sender: FDA-Public Use
  Company Number: GB-PFIZER INC-2012026974

PATIENT
  Age: 59 Year
  Sex: Male
  Weight: 73.7 kg

DRUGS (2)
  1. CANDESARTAN [Concomitant]
     Dosage: UNK
     Dates: start: 20111031
  2. SERTRALINE HYDROCHLORIDE [Suspect]
     Dosage: UNK
     Dates: start: 20120105

REACTIONS (2)
  - MALAISE [None]
  - FEELING DRUNK [None]
